FAERS Safety Report 6373435-8 (Version None)
Quarter: 2009Q3

REPORT INFORMATION
  Report Type: 
  Country: None (occurrence: None)
  Receive Date: 20090924
  Receipt Date: 20090319
  Transmission Date: 20100115
  Serious: No
  Sender: FDA-Public Use
  Company Number: US-ASTRAZENECA-2009UW07085

PATIENT

DRUGS (1)
  1. SEROQUEL [Suspect]
     Route: 048

REACTIONS (4)
  - ANGER [None]
  - INSOMNIA [None]
  - INTERMITTENT EXPLOSIVE DISORDER [None]
  - TACHYPHRENIA [None]
